FAERS Safety Report 26105192 (Version 2)
Quarter: 2025Q4

REPORT INFORMATION
  Report Type: Spontaneous
  Country: US (occurrence: US)
  Receive Date: 20251201
  Receipt Date: 20251202
  Transmission Date: 20260119
  Serious: Yes (Life-Threatening, Hospitalization, Disabling, Other)
  Sender: MSN LABORATORIES PRIVATE LIMITED
  Company Number: US-MSNLABS-2025MSNLIT03590

PATIENT

DRUGS (10)
  1. ROSUVASTATIN [Suspect]
     Active Substance: ROSUVASTATIN
     Indication: Hyperlipidaemia
     Dosage: 40 MG PER DAY
     Route: 065
  2. SERTRALINE [Suspect]
     Active Substance: SERTRALINE HYDROCHLORIDE
     Indication: Product used for unknown indication
     Route: 065
  3. ASPIRIN [Concomitant]
     Active Substance: ASPIRIN
     Route: 065
  4. CLONAZEPAM [Concomitant]
     Active Substance: CLONAZEPAM
     Indication: Product used for unknown indication
     Route: 065
  5. CLONIDINE [Concomitant]
     Active Substance: CLONIDINE
     Indication: Hypertension
     Route: 065
  6. DICYCLOMINE [Concomitant]
     Active Substance: DICYCLOMINE HYDROCHLORIDE
     Indication: Product used for unknown indication
     Route: 065
  7. PRASUGREL [Concomitant]
     Active Substance: PRASUGREL
     Route: 065
  8. METOPROLOL [Concomitant]
     Active Substance: METOPROLOL
     Indication: Hypertension
     Route: 065
  9. TRAMADOL [Concomitant]
     Active Substance: TRAMADOL
     Indication: Product used for unknown indication
     Route: 065
  10. TRAZODONE [Concomitant]
     Active Substance: TRAZODONE HYDROCHLORIDE
     Indication: Product used for unknown indication
     Route: 065

REACTIONS (5)
  - Fall [Recovered/Resolved]
  - Potentiating drug interaction [Recovered/Resolved]
  - Rhabdomyolysis [Recovered/Resolved]
  - Muscular weakness [Recovered/Resolved]
  - Myopathy [Recovered/Resolved]
